FAERS Safety Report 25051515 (Version 2)
Quarter: 2025Q1

REPORT INFORMATION
  Report Type: Report from Study
  Country: CA (occurrence: CA)
  Receive Date: 20250307
  Receipt Date: 20250317
  Transmission Date: 20250409
  Serious: Yes (Other)
  Sender: ALEXION PHARMACEUTICALS
  Company Number: CA-AstraZeneca-CH-00819531A

PATIENT

DRUGS (4)
  1. TEZEPELUMAB [Suspect]
     Active Substance: TEZEPELUMAB
     Indication: Asthma
  2. TEZEPELUMAB [Suspect]
     Active Substance: TEZEPELUMAB
  3. ALBUTEROL [Concomitant]
     Active Substance: ALBUTEROL
     Route: 065
  4. TRELEGY ELLIPTA [Concomitant]
     Active Substance: FLUTICASONE FUROATE\UMECLIDINIUM BROMIDE\VILANTEROL TRIFENATATE
     Route: 065

REACTIONS (15)
  - Non-cardiogenic pulmonary oedema [Unknown]
  - Interstitial lung disease [Unknown]
  - Respiratory disorder [Unknown]
  - Respiratory tract infection [Unknown]
  - Urinary tract infection [Unknown]
  - Drug ineffective [Unknown]
  - Sinus disorder [Unknown]
  - Rhinitis allergic [Unknown]
  - Sinusitis [Unknown]
  - Gastrooesophageal reflux disease [Unknown]
  - Urinary tract infection [Unknown]
  - Oedema peripheral [Unknown]
  - Respiratory tract infection viral [Unknown]
  - Bronchiectasis [Unknown]
  - Respiratory disorder [Unknown]
